FAERS Safety Report 6106586-3 (Version None)
Quarter: 2009Q1

REPORT INFORMATION
  Report Type: 
  Country: None (occurrence: None)
  Receive Date: 20090304
  Receipt Date: 20090223
  Transmission Date: 20090719
  Serious: No
  Sender: FDA-Public Use
  Company Number: 2008SP023804

PATIENT
  Age: 6 Month
  Sex: Male
  Weight: 32 kg

DRUGS (7)
  1. DESLORATADINE [Suspect]
     Indication: NASOPHARYNGITIS
     Dosage: 5 ML; QD; PO
     Route: 048
     Dates: start: 20080920, end: 20080922
  2. DESLORATADINE [Suspect]
     Indication: UPPER RESPIRATORY TRACT INFECTION
     Dosage: 5 ML; QD; PO
     Route: 048
     Dates: start: 20080920, end: 20080922
  3. EURESPAL (FENSPIRIDE) (NO PREF. NAME) [Suspect]
     Indication: NASOPHARYNGITIS
     Dosage: 10 ML; TID; PO
     Route: 048
     Dates: start: 20080920, end: 20080922
  4. EURESPAL (FENSPIRIDE) (NO PREF. NAME) [Suspect]
     Indication: UPPER RESPIRATORY TRACT INFECTION
     Dosage: 10 ML; TID; PO
     Route: 048
     Dates: start: 20080920, end: 20080922
  5. SINGULAIR [Concomitant]
  6. FLIXOTIDE DYSK 100 (FLUTICASONE PROPIONATE) [Concomitant]
  7. ISOPRINOSINE [Concomitant]

REACTIONS (3)
  - BALANCE DISORDER [None]
  - NAUSEA [None]
  - VISUAL IMPAIRMENT [None]
